FAERS Safety Report 17973247 (Version 1)
Quarter: 2020Q3

REPORT INFORMATION
  Report Type: Spontaneous
  Country: US (occurrence: US)
  Receive Date: 20200701
  Receipt Date: 20200701
  Transmission Date: 20201103
  Serious: Yes (Death)
  Sender: FDA-Public Use
  Company Number: None

PATIENT
  Age: 79 Year
  Sex: Female

DRUGS (13)
  1. MIDORINE [Suspect]
     Active Substance: MIDODRINE
  2. BUMEX [Suspect]
     Active Substance: BUMETANIDE
  3. ATORVASTATIN [Suspect]
     Active Substance: ATORVASTATIN
  4. ELIQUIS [Suspect]
     Active Substance: APIXABAN
  5. FLUTICASONE. [Suspect]
     Active Substance: FLUTICASONE
  6. SILDENAFIL 20MG TAB [Suspect]
     Active Substance: SILDENAFIL
     Indication: PULMONARY ARTERIAL HYPERTENSION
     Dosage: ?          OTHER DOSE:1 TAB;?
     Route: 048
     Dates: start: 20190530, end: 20200607
  7. FLUOXETINE [Suspect]
     Active Substance: FLUOXETINE HYDROCHLORIDE
  8. LATANOPROST. [Suspect]
     Active Substance: LATANOPROST
  9. SPIRIVA [Suspect]
     Active Substance: TIOTROPIUM BROMIDE MONOHYDRATE
  10. BUMETANIDE. [Suspect]
     Active Substance: BUMETANIDE
  11. IPRATROPIUM [Suspect]
     Active Substance: IPRATROPIUM
  12. OMEPRAZOLE. [Suspect]
     Active Substance: OMEPRAZOLE
  13. ONDANSETRON [Suspect]
     Active Substance: ONDANSETRON

REACTIONS (1)
  - Death [None]

NARRATIVE: CASE EVENT DATE: 20200607
